FAERS Safety Report 6208250-9 (Version None)
Quarter: 2009Q2

REPORT INFORMATION
  Report Type: 
  Country: None (occurrence: None)
  Receive Date: 20090529
  Receipt Date: 20090527
  Transmission Date: 20091009
  Serious: Yes (Death)
  Sender: FDA-Public Use
  Company Number: US-RB-016099-09

PATIENT
  Age: 40 Year
  Sex: Female

DRUGS (1)
  1. SUBOXONE [Suspect]
     Indication: PROPHYLAXIS AGAINST HIV INFECTION
     Route: 060
     Dates: start: 20090114, end: 20090506

REACTIONS (1)
  - SUDDEN DEATH [None]
